FAERS Safety Report 8586269-0 (Version None)
Quarter: 2012Q3

REPORT INFORMATION
  Report Type: 
  Country: None (occurrence: None)
  Receive Date: 20120730
  Receipt Date: 20120712
  Transmission Date: 20120928
  Serious: Yes (Hospitalization)
  Sender: FDA-Public Use
  Company Number: ABR_00536_2012

PATIENT
  Age: 10 Year
  Sex: Male

DRUGS (3)
  1. CLARITHROMYCIN [Suspect]
     Indication: PRODUCT USED FOR UNKNOWN INDICATION
     Dosage: DF, UNK
  2. ERYTHROMYCIN [Suspect]
     Indication: PRODUCT USED FOR UNKNOWN INDICATION
     Dosage: DF, UNK
  3. ACETAZOLAMIDE [Suspect]
     Dosage: DF

REACTIONS (3)
  - GENERAL PHYSICAL HEALTH DETERIORATION [None]
  - STEVENS-JOHNSON SYNDROME [None]
  - PNEUMONIA MYCOPLASMAL [None]
